FAERS Safety Report 7732781-3 (Version None)
Quarter: 2011Q3

REPORT INFORMATION
  Report Type: 
  Country: None (occurrence: None)
  Receive Date: 20110907
  Receipt Date: 20110824
  Transmission Date: 20111222
  Serious: Yes (Hospitalization)
  Sender: FDA-Public Use
  Company Number: US-JNJFOC-20110901280

PATIENT
  Sex: Male
  Weight: 68.04 kg

DRUGS (3)
  1. MORPHINE SULFATE [Suspect]
     Indication: BREAKTHROUGH PAIN
     Route: 065
  2. DURAGESIC-100 [Suspect]
     Indication: PAIN
     Dosage: 100 + 75 UG/HR
     Route: 062
  3. DURAGESIC-100 [Suspect]
     Route: 062
     Dates: start: 20090101

REACTIONS (8)
  - PRODUCT QUALITY ISSUE [None]
  - THERAPEUTIC RESPONSE DECREASED [None]
  - INAPPROPRIATE SCHEDULE OF DRUG ADMINISTRATION [None]
  - WRONG TECHNIQUE IN DRUG USAGE PROCESS [None]
  - PRODUCT ADHESION ISSUE [None]
  - DERMATITIS CONTACT [None]
  - APPLICATION SITE IRRITATION [None]
  - PAIN [None]
